FAERS Safety Report 4606513-1 (Version None)
Quarter: 2005Q2

REPORT INFORMATION
  Report Type: 
  Country: None (occurrence: None)
  Receive Date: 20050223
  Receipt Date: 20041214
  Transmission Date: 20051028
  Serious: Yes (Disabling)
  Sender: FDA-Public Use
  Company Number: WAES 0412USA01752

PATIENT
  Age: 71 Year
  Sex: Female

DRUGS (5)
  1. ZOCOR [Suspect]
     Indication: BLOOD CHOLESTEROL INCREASED
     Dosage: PO
     Route: 048
     Dates: end: 20041101
  2. ACTOS [Concomitant]
  3. PRINIVIL [Concomitant]
  4. SYNTHROID [Concomitant]
  5. CALCIUM LACTATE [Concomitant]

REACTIONS (2)
  - ASTHENIA [None]
  - MYALGIA [None]
